FAERS Safety Report 11226012 (Version 2)
Quarter: 2016Q1

REPORT INFORMATION
  Report Type: Spontaneous
  Country: US (occurrence: US)
  Receive Date: 20150629
  Receipt Date: 20160303
  Transmission Date: 20160525
  Serious: Yes (Other)
  Sender: FDA-Public Use
  Company Number: US-TEVA-573173USA

PATIENT
  Sex: Female
  Weight: 113.14 kg

DRUGS (13)
  1. HYDROCHLOROTHIAZIDE. [Suspect]
     Active Substance: HYDROCHLOROTHIAZIDE
     Indication: BLOOD PRESSURE MEASUREMENT
     Dosage: 25 MILLIGRAM DAILY;
     Route: 048
     Dates: start: 20140828
  2. METFORMIN [Suspect]
     Active Substance: METFORMIN HYDROCHLORIDE
     Indication: BLOOD GLUCOSE
     Dosage: 1000 MILLIGRAM DAILY;
     Route: 048
     Dates: start: 20150112
  3. AMLODIPINE [Suspect]
     Active Substance: AMLODIPINE BESYLATE
     Indication: BLOOD PRESSURE MEASUREMENT
     Dosage: 5 MILLIGRAM DAILY;
     Route: 048
     Dates: start: 20140828
  4. EFFEXOR XR [Suspect]
     Active Substance: VENLAFAXINE HYDROCHLORIDE
     Dosage: 75 MILLIGRAM DAILY;
     Route: 048
     Dates: start: 20141003
  5. EFFEXOR XR [Suspect]
     Active Substance: VENLAFAXINE HYDROCHLORIDE
     Dosage: 150 MILLIGRAM DAILY;
     Route: 048
     Dates: start: 20141003
  6. XANAX [Suspect]
     Active Substance: ALPRAZOLAM
     Indication: ANXIETY
     Dosage: 6 MILLIGRAM DAILY;
     Route: 048
     Dates: start: 20141204
  7. MINOCYCLINE [Suspect]
     Active Substance: MINOCYCLINE\MINOCYCLINE HYDROCHLORIDE
     Indication: DRY EYE
     Dosage: 400 MILLIGRAM DAILY;
     Route: 048
     Dates: start: 20150130
  8. BETAMETHASONE. [Suspect]
     Active Substance: BETAMETHASONE
     Dosage: THIN LAYER TO THE AFFECTED AREA EVERY DAY
     Route: 061
     Dates: start: 20130724
  9. TRIAMCINOLONE ACETONIDE. [Suspect]
     Active Substance: TRIAMCINOLONE ACETONIDE
     Dosage: 2-3 TIMES A DAY A THIN FILM TO THE AFFECTED SKIN AREAS
     Route: 061
     Dates: start: 20141224
  10. METOPROLOL SUCCINATE/OLMESARTAN MEDOXOMIL [Suspect]
     Active Substance: METOPROLOL SUCCINATE\OLMESARTAN MEDOXOMIL
     Dosage: 25 MILLIGRAM DAILY;
     Dates: start: 201601
  11. AMLODIPINE [Suspect]
     Active Substance: AMLODIPINE BESYLATE
     Dosage: 10 MILLIGRAM DAILY;
     Route: 048
  12. CLOBETASOL PROPIONATE. [Suspect]
     Active Substance: CLOBETASOL PROPIONATE
     Dosage: APPLY THIN LAYER TO AFFECTED AREA
     Route: 061
     Dates: start: 20141204
  13. MOBIC [Suspect]
     Active Substance: MELOXICAM
     Indication: ARTHRALGIA
     Dosage: 1 TABLET AS NEEDED EVEERY DAY
     Route: 048
     Dates: start: 20141120

REACTIONS (5)
  - Calculus urinary [Unknown]
  - Dermatitis contact [Unknown]
  - Diabetes mellitus [Not Recovered/Not Resolved]
  - Lagophthalmos [Unknown]
  - Cerebrovascular disorder [Not Recovered/Not Resolved]
